FAERS Safety Report 11887260 (Version 6)
Quarter: 2016Q2

REPORT INFORMATION
  Report Type: Report from Study
  Country: US (occurrence: US)
  Receive Date: 20160104
  Receipt Date: 20160518
  Transmission Date: 20160815
  Serious: Yes (Hospitalization)
  Sender: FDA-Public Use
  Company Number: US-ACTELION-A-NJ2015-129402

PATIENT
  Age: 66 Year
  Sex: Female

DRUGS (5)
  1. MACITENTAN [Suspect]
     Active Substance: MACITENTAN
     Indication: PULMONARY ARTERIAL HYPERTENSION
     Dosage: 10 MG, QD
     Route: 048
     Dates: start: 20151215
  2. MACITENTAN [Suspect]
     Active Substance: MACITENTAN
     Dosage: 10 MG, QD
     Route: 048
     Dates: start: 20160104
  3. WARFARIN [Concomitant]
     Active Substance: WARFARIN
  4. OXYGEN. [Concomitant]
     Active Substance: OXYGEN
  5. ADCIRCA [Suspect]
     Active Substance: TADALAFIL
     Indication: PRODUCT USED FOR UNKNOWN INDICATION
     Route: 065

REACTIONS (8)
  - Seizure [Unknown]
  - Tremor [Unknown]
  - Drug dose omission [Unknown]
  - Malaise [Unknown]
  - Loss of consciousness [Unknown]
  - Dizziness [Unknown]
  - Respiratory distress [Unknown]
  - Dyspnoea exertional [Unknown]
